FAERS Safety Report 21389940 (Version 1)
Quarter: 2022Q3

REPORT INFORMATION
  Report Type: Spontaneous
  Country: DE (occurrence: DE)
  Receive Date: 20220929
  Receipt Date: 20220929
  Transmission Date: 20221027
  Serious: Yes (Other)
  Sender: FDA-Public Use
  Company Number: DE-NOVARTISPH-NVSC2022DE218185

PATIENT
  Sex: Female
  Weight: 99 kg

DRUGS (4)
  1. DEXAMETHASONE [Suspect]
     Active Substance: DEXAMETHASONE
     Indication: Plasma cell myeloma
     Dosage: 20 MG (DATE OF THE LAST DOSAGE : 02-AUG-2022)
     Route: 065
     Dates: start: 20220801
  2. CARFILZOMIB [Suspect]
     Active Substance: CARFILZOMIB
     Indication: Plasma cell myeloma
     Dosage: 40 MG (DATE OF THE LAST DOSAGE: 02-AUG-2022)
     Route: 065
     Dates: start: 20220801
  3. DARATUMUMAB [Suspect]
     Active Substance: DARATUMUMAB
     Indication: Plasma cell myeloma
     Dosage: 792 MG (DATE OF THE LAST DOSAGE : 02/AUG/2022)
     Route: 042
     Dates: start: 20220801
  4. EUTHYROX [Concomitant]
     Active Substance: LEVOTHYROXINE SODIUM
     Indication: Product used for unknown indication
     Dosage: 112 UG, QD (DAILY)
     Route: 048
     Dates: start: 20180121

REACTIONS (1)
  - Leukopenia [Not Recovered/Not Resolved]

NARRATIVE: CASE EVENT DATE: 20220808
